FAERS Safety Report 18279270 (Version 2)
Quarter: 2020Q3

REPORT INFORMATION
  Report Type: Spontaneous
  Country: PL (occurrence: PL)
  Receive Date: 20200917
  Receipt Date: 20200924
  Transmission Date: 20201103
  Serious: Yes (Other)
  Sender: FDA-Public Use
  Company Number: PL-ALLERGAN-2035021US

PATIENT
  Sex: Female

DRUGS (1)
  1. LEVONORGESTREL ? BP [Suspect]
     Active Substance: LEVONORGESTREL
     Indication: CONTRACEPTION
     Dosage: 52 MG, AT AN INITIAL RELEASE RATE OF 20 MICROGRAM PER 24 HOURS
     Route: 015
     Dates: start: 201801, end: 2020

REACTIONS (5)
  - Abortion spontaneous [Unknown]
  - Pregnancy with contraceptive device [Unknown]
  - Pregnancy [Unknown]
  - Vaginal haemorrhage [Unknown]
  - Drug ineffective [Unknown]

NARRATIVE: CASE EVENT DATE: 20200831
